FAERS Safety Report 13948308 (Version 1)
Quarter: 2017Q3

REPORT INFORMATION
  Report Type: Spontaneous
  Country: US (occurrence: US)
  Receive Date: 20170907
  Receipt Date: 20170907
  Transmission Date: 20171128
  Serious: Yes (Life-Threatening, Disabling, Other)
  Sender: FDA-Public Use
  Company Number: None

PATIENT
  Sex: Male
  Weight: 91.35 kg

DRUGS (7)
  1. BRILINTA [Suspect]
     Active Substance: TICAGRELOR
     Indication: ANTICOAGULANT THERAPY
     Dosage: ?          QUANTITY:279 TABLET(S);?
     Route: 048
     Dates: start: 20170421, end: 20170907
  2. ASTORVASTATIN [Concomitant]
  3. ENTRESTO [Concomitant]
     Active Substance: SACUBITRIL\VALSARTAN
  4. VITAMINS [Concomitant]
     Active Substance: VITAMINS
  5. SPIRONOLACTONE. [Concomitant]
     Active Substance: SPIRONOLACTONE
  6. ASPIRIN. [Concomitant]
     Active Substance: ASPIRIN
  7. METOPROLOL. [Concomitant]
     Active Substance: METOPROLOL

REACTIONS (8)
  - Urine output decreased [None]
  - Ejection fraction decreased [None]
  - Product quality issue [None]
  - Dyspnoea [None]
  - Fear [None]
  - Pain in extremity [None]
  - Chest discomfort [None]
  - Product use issue [None]

NARRATIVE: CASE EVENT DATE: 20170421
